FAERS Safety Report 10643952 (Version 1)
Quarter: 2014Q4

REPORT INFORMATION
  Report Type: Spontaneous
  Country: FR (occurrence: FR)
  Receive Date: 20141210
  Receipt Date: 20141210
  Transmission Date: 20150529
  Serious: Yes (Hospitalization, Other)
  Sender: FDA-Public Use
  Company Number: FR-PFIZER INC-2014334815

PATIENT
  Age: 92 Year
  Sex: Female

DRUGS (14)
  1. MEDROL [Suspect]
     Active Substance: METHYLPREDNISOLONE
     Dosage: 8 MG, DAILY
     Route: 048
     Dates: start: 20140731, end: 20140806
  2. FORLAX [Suspect]
     Active Substance: POLYETHYLENE GLYCOL 4000
     Dosage: 10 G (1DF), 1X/DAY AT 10AM
     Route: 048
  3. MEDROL [Suspect]
     Active Substance: METHYLPREDNISOLONE
     Dosage: 4 MG, DAILY
     Route: 048
     Dates: start: 20140807
  4. LASILIX [Suspect]
     Active Substance: FUROSEMIDE
     Indication: CARDIAC FAILURE
     Dosage: 20 MG (0.5DF), 1X/DAY IN THE MORNING
     Route: 048
  5. APROVEL [Concomitant]
     Active Substance: IRBESARTAN
     Dosage: 150 MG, 1X/DAY IN THE MORNING
     Route: 048
  6. CACIT [Concomitant]
     Active Substance: CALCIUM\VITAMIN D
     Dosage: 1000 MG (1DF) 1X/DAY
     Route: 048
  7. SERESTA [Concomitant]
     Active Substance: OXAZEPAM
     Dosage: 10 MG (1DF), 1X/DAY AT BEDTIME
     Route: 048
  8. PLAVIX [Concomitant]
     Active Substance: CLOPIDOGREL BISULFATE
     Dosage: 75 MG (1DF), 1X/DAY AT NOON
     Route: 048
  9. PARACETAMOL [Concomitant]
     Active Substance: ACETAMINOPHEN
     Dosage: 1 G, 3X/DAY
     Route: 048
  10. ALLOPURINOL. [Concomitant]
     Active Substance: ALLOPURINOL
     Dosage: 100 MG (1DF), 1X/DAY
     Route: 048
  11. MEDROL [Suspect]
     Active Substance: METHYLPREDNISOLONE
     Indication: RHEUMATOID ARTHRITIS
     Dosage: 2 MG, 1X/DAY
     Route: 048
     Dates: end: 20140722
  12. MEDROL [Suspect]
     Active Substance: METHYLPREDNISOLONE
     Dosage: 16 MG, DAILY
     Route: 048
     Dates: start: 20140723, end: 20140730
  13. ADROVANCE [Concomitant]
     Active Substance: ALENDRONATE SODIUM\CHOLECALCIFEROL
     Dosage: 70 MG (1DF) , 1X/DAY
     Route: 048
  14. BISOPROLOL FUMARATE. [Concomitant]
     Active Substance: BISOPROLOL FUMARATE
     Dosage: 2.5 MG (1/2DF), 2X/DAY (MORNING AND EVENTING)
     Route: 048

REACTIONS (7)
  - Fluid retention [Recovered/Resolved]
  - Blood pressure increased [Recovering/Resolving]
  - Cardiomegaly [Unknown]
  - Hyponatraemia [Recovering/Resolving]
  - Oedema peripheral [Recovering/Resolving]
  - Renal failure [Recovering/Resolving]
  - Paraesthesia [Unknown]

NARRATIVE: CASE EVENT DATE: 20140807
